FAERS Safety Report 8880208 (Version 2)
Quarter: 2012Q4

REPORT INFORMATION
  Report Type: 
  Country: US (occurrence: US)
  Receive Date: 20121101
  Receipt Date: 20121107
  Transmission Date: 20130627
  Serious: Yes (Hospitalization, Disabling)
  Sender: FDA-Public Use
  Company Number: US-UCBSA-069266

PATIENT
  Sex: Male

DRUGS (12)
  1. VIMPAT [Suspect]
     Indication: CONVULSION
     Dosage: STRENGTH :200MG
     Dates: start: 201110
  2. ALCOHOL [Suspect]
  3. AMLODIPINE [Concomitant]
     Indication: HYPERTENSION
     Dosage: 2.5MG DAILY
  4. HYDROCODONE [Concomitant]
     Indication: PAIN
  5. ISOSORBIDE [Concomitant]
     Indication: CHEST PAIN
     Dosage: 30MG DAILY
  6. LACTULOSE [Concomitant]
     Indication: CONSTIPATION
  7. MELATONIN [Concomitant]
     Indication: SLEEP DISORDER
     Dosage: HS
  8. NADOLOL [Concomitant]
     Indication: PORTAL HYPERTENSION
     Dosage: 20MG DAILY
  9. CLONAZEPAM [Concomitant]
     Indication: BIPOLAR DISORDER
     Dosage: 2 MG DAILY
  10. FOSRENOL [Concomitant]
     Indication: RENAL DISORDER
  11. SENSIPAR [Concomitant]
     Dosage: 90MG DAILY
  12. XIFAXAN [Concomitant]
     Indication: LIVER DISORDER

REACTIONS (8)
  - Petit mal epilepsy [Unknown]
  - Hyporesponsive to stimuli [Unknown]
  - Activities of daily living impaired [Unknown]
  - Bipolar disorder [Unknown]
  - Complex partial seizures [Recovering/Resolving]
  - Renal failure chronic [Unknown]
  - Hepatic encephalopathy [Unknown]
  - Bradycardia [Recovered/Resolved]
